FAERS Safety Report 6935368-5 (Version None)
Quarter: 2010Q3

REPORT INFORMATION
  Report Type: 
  Country: None (occurrence: None)
  Receive Date: 20100823
  Receipt Date: 20100811
  Transmission Date: 20110219
  Serious: Yes (Hospitalization)
  Sender: FDA-Public Use
  Company Number: US-BIOGENIDEC-2010BI027572

PATIENT
  Age: 69 Year
  Sex: Female

DRUGS (13)
  1. TYSABRI [Suspect]
     Indication: MULTIPLE SCLEROSIS
     Route: 042
     Dates: start: 20080425
  2. FOSAMAX [Concomitant]
     Indication: OSTEOPOROSIS
  3. AVANDIA [Concomitant]
     Indication: DIABETES MELLITUS
     Dates: start: 20091001
  4. BYETTA [Concomitant]
     Indication: DIABETES MELLITUS
     Route: 058
  5. ADVICOR [Concomitant]
     Indication: HYPERLIPIDAEMIA
  6. LOPRESSOR [Concomitant]
     Indication: HYPERTENSION
  7. GLIPIZIDE [Concomitant]
     Indication: DIABETES MELLITUS
     Dates: start: 20091001
  8. FUROSEMIDE [Concomitant]
     Indication: HYPERTENSION
  9. HYDROCHLOROTHIAZIDE [Concomitant]
     Indication: HYPERTENSION
  10. LISINOPRIL [Concomitant]
     Indication: HYPERTENSION
  11. ASPIRIN [Concomitant]
  12. CELEBREX [Concomitant]
     Dates: end: 20100809
  13. PLAVIX [Concomitant]

REACTIONS (2)
  - ANAEMIA [None]
  - RENAL FAILURE ACUTE [None]
